FAERS Safety Report 5141061-4 (Version None)
Quarter: 2006Q4

REPORT INFORMATION
  Report Type: 
  Country: None (occurrence: None)
  Receive Date: 20061026
  Receipt Date: 20061013
  Transmission Date: 20070319
  Serious: Yes (Hospitalization, Other)
  Sender: FDA-Public Use
  Company Number: 2006048490

PATIENT
  Age: 9 Year
  Sex: Female

DRUGS (6)
  1. SILDENAFIL CITRATE [Suspect]
     Indication: PULMONARY HYPERTENSION
     Dosage: 150 MG (150 MG, 1 IN 1 D) ORAL
     Route: 048
     Dates: start: 20030101
  2. CAPTOPRIL [Concomitant]
  3. FUROSEMIDE [Concomitant]
  4. DIGOXIN [Concomitant]
  5. MAREVAN FORTE (WARFARIN SODIUM) [Concomitant]
  6. ALDACTONE [Concomitant]

REACTIONS (7)
  - CARDIAC FAILURE [None]
  - CONDITION AGGRAVATED [None]
  - HAEMODYNAMIC INSTABILITY [None]
  - HYPOTENSION [None]
  - PNEUMONIA PNEUMOCOCCAL [None]
  - PULMONARY HYPERTENSION [None]
  - VENTRICULAR FAILURE [None]
